FAERS Safety Report 5823264-6 (Version None)
Quarter: 2008Q3

REPORT INFORMATION
  Report Type: 
  Country: None (occurrence: None)
  Receive Date: 20080725
  Receipt Date: 20080716
  Transmission Date: 20090109
  Serious: Yes (Hospitalization)
  Sender: FDA-Public Use
  Company Number: GB-BRISTOL-MYERS SQUIBB COMPANY-14263073

PATIENT
  Age: 71 Year
  Sex: Male
  Weight: 75 kg

DRUGS (3)
  1. CETUXIMAB [Suspect]
     Indication: COLORECTAL CANCER
     Dosage: 2MG/ML
     Route: 042
     Dates: start: 20070524
  2. OXALIPLATIN [Suspect]
     Indication: COLORECTAL CANCER
     Route: 042
     Dates: start: 20070524
  3. CAPECITABINE [Suspect]
     Indication: COLORECTAL CANCER
     Dosage: 100MG/M2 PO TWICE /D D1 TO D14 EVERY 3W
     Route: 042
     Dates: start: 20070524

REACTIONS (1)
  - PENIS DISORDER [None]
